FAERS Safety Report 8500106-1 (Version None)
Quarter: 2012Q3

REPORT INFORMATION
  Report Type: 
  Country: None (occurrence: None)
  Receive Date: 20120710
  Receipt Date: 20120703
  Transmission Date: 20120928
  Serious: Yes (Hospitalization)
  Sender: FDA-Public Use
  Company Number: US-BAYER-2012-016108

PATIENT
  Age: 23 Year
  Sex: Female
  Weight: 58.957 kg

DRUGS (3)
  1. YAZ [Suspect]
     Dosage: UNK
     Dates: start: 20070101
  2. YAZ [Suspect]
     Dosage: UNK
     Dates: start: 20090101, end: 20100101
  3. ALEVE [Concomitant]
     Dosage: UNK
     Dates: start: 20000101

REACTIONS (5)
  - GALLBLADDER DISORDER [None]
  - INJURY [None]
  - CHOLECYSTITIS [None]
  - MENTAL DISORDER [None]
  - PAIN [None]
